FAERS Safety Report 5014158-7 (Version None)
Quarter: 2006Q2

REPORT INFORMATION
  Report Type: 
  Country: None (occurrence: None)
  Receive Date: 20060414
  Receipt Date: 20060203
  Transmission Date: 20061013
  Serious: No
  Sender: FDA-Public Use
  Company Number: 2006SP000618

PATIENT
  Age: 54 Year
  Sex: Female
  Weight: 53.5244 kg

DRUGS (4)
  1. LUNESTA [Suspect]
     Indication: INSOMNIA
     Dosage: 2 MG;HS;ORAL
     Route: 048
     Dates: start: 20060101
  2. TYLENOL (CAPLET) [Concomitant]
  3. IRON [Concomitant]
  4. AMBIEN [Concomitant]

REACTIONS (3)
  - DYSGEUSIA [None]
  - MIDDLE INSOMNIA [None]
  - PALPITATIONS [None]
